FAERS Safety Report 4530784-3 (Version None)
Quarter: 2004Q4

REPORT INFORMATION
  Report Type: 
  Country: None (occurrence: None)
  Receive Date: 20041216
  Receipt Date: 20041129
  Transmission Date: 20050328
  Serious: Yes (Hospitalization)
  Sender: FDA-Public Use
  Company Number: DE_041114652

PATIENT
  Age: 60 Year
  Sex: Male

DRUGS (3)
  1. GEMZAR [Suspect]
     Indication: PANCREATIC CARCINOMA
     Dosage: 1000 MG/M2
     Dates: start: 20040101
  2. BETA BLOCKING AGENTS [Concomitant]
  3. RAMIPRIL [Concomitant]

REACTIONS (5)
  - CYTOMEGALOVIRUS INFECTION [None]
  - LUNG INFILTRATION [None]
  - PNEUMONITIS [None]
  - PULMONARY TOXICITY [None]
  - RESPIRATORY FAILURE [None]
